FAERS Safety Report 24916257 (Version 1)
Quarter: 2025Q1

REPORT INFORMATION
  Report Type: Spontaneous
  Country: GB (occurrence: GB)
  Receive Date: 20250203
  Receipt Date: 20250203
  Transmission Date: 20250408
  Serious: Yes (Other)
  Sender: TEVA
  Company Number: None

PATIENT
  Age: 52 Year
  Sex: Female
  Weight: 51 kg

DRUGS (1)
  1. TRIMETHOPRIM [Suspect]
     Active Substance: TRIMETHOPRIM
     Indication: Product used for unknown indication
     Route: 065
     Dates: end: 20250105

REACTIONS (13)
  - Myalgia [Recovering/Resolving]
  - Nausea [Recovered/Resolved]
  - Paraesthesia [Recovered/Resolved]
  - Constipation [Recovering/Resolving]
  - Arthralgia [Recovering/Resolving]
  - Tremor [Recovering/Resolving]
  - Dizziness [Recovering/Resolving]
  - Nightmare [Recovering/Resolving]
  - Insomnia [Recovering/Resolving]
  - Tinnitus [Recovering/Resolving]
  - Fatigue [Recovering/Resolving]
  - Taste disorder [Recovered/Resolved]
  - Glossodynia [Recovering/Resolving]

NARRATIVE: CASE EVENT DATE: 20250104
